FAERS Safety Report 7537631-6 (Version None)
Quarter: 2011Q2

REPORT INFORMATION
  Report Type: 
  Country: None (occurrence: None)
  Receive Date: 20110609
  Receipt Date: 20070812
  Transmission Date: 20111010
  Serious: Yes (Life-Threatening)
  Sender: FDA-Public Use
  Company Number: PHMT2007CA01634

PATIENT
  Sex: Female
  Weight: 63.492 kg

DRUGS (1)
  1. ZOLEDRONIC ACID [Suspect]
     Dosage: 5 MG
     Route: 042
     Dates: start: 20060529

REACTIONS (2)
  - ANAPHYLACTIC SHOCK [None]
  - RESPIRATORY ARREST [None]
